FAERS Safety Report 13511714 (Version 1)
Quarter: 2017Q2

REPORT INFORMATION
  Report Type: Report from Study
  Country: US (occurrence: US)
  Receive Date: 20170504
  Receipt Date: 20170504
  Transmission Date: 20170830
  Serious: Yes (Hospitalization, Other)
  Sender: FDA-Public Use
  Company Number: US-GILEAD-2017-0270976

PATIENT
  Age: 69 Year
  Sex: Female

DRUGS (2)
  1. UPTRAVI [Concomitant]
     Active Substance: SELEXIPAG
     Indication: PULMONARY HYPERTENSION
     Dates: start: 20170214
  2. AMBRISENTAN [Suspect]
     Active Substance: AMBRISENTAN
     Indication: PULMONARY HYPERTENSION
     Dosage: 10 MG, QD
     Route: 065
     Dates: start: 20070827

REACTIONS (2)
  - Dehydration [Recovered/Resolved]
  - Blood sodium decreased [Recovered/Resolved]
